FAERS Safety Report 8790292 (Version 1)
Quarter: 2012Q4

REPORT INFORMATION
  Report Type: 
  Country: GB (occurrence: GB)
  Receive Date: 20120917
  Receipt Date: 20120917
  Transmission Date: 20130627
  Serious: Yes (Disabling)
  Sender: FDA-Public Use
  Company Number: PHHY2012GB079798

PATIENT
  Age: 73 Year
  Sex: Male
  Weight: 99 kg

DRUGS (10)
  1. 5-FLUOROURACIL [Suspect]
     Indication: OESOPHAGEAL CARCINOMA
     Dosage: 9000 mg, UNK
     Route: 042
     Dates: start: 20120702, end: 20120706
  2. 5-FLUOROURACIL [Suspect]
     Dosage: 8000 mg, UNK
     Route: 042
     Dates: start: 20120724, end: 20120727
  3. BISOPROLOL [Concomitant]
     Dosage: 5 mg, UNK
     Route: 048
  4. CISPLATIN [Concomitant]
     Indication: OESOPHAGEAL CARCINOMA
     Dosage: 181 mg, UNK
     Route: 042
     Dates: start: 20120702, end: 20120706
  5. CISPLATIN [Concomitant]
     Dosage: 160 mg, UNK
     Route: 042
     Dates: start: 20120724, end: 20120727
  6. DEXAMETHASONE [Concomitant]
     Dosage: 12 mg, UNK
     Route: 042
  7. INTRAVENOUS FLUID [Concomitant]
     Route: 042
  8. NICORANDIL [Concomitant]
     Dosage: 20 mg, BID
     Route: 048
  9. ONDANSETRON [Concomitant]
     Dosage: 16 mg, UNK
     Route: 042
  10. SIMVASTATIN [Concomitant]
     Dosage: 20 mg, UNK
     Route: 048

REACTIONS (3)
  - Skin exfoliation [Recovering/Resolving]
  - Phlebitis [Recovering/Resolving]
  - Infusion site irritation [Recovering/Resolving]
